FAERS Safety Report 11633131 (Version 1)
Quarter: 2015Q4

REPORT INFORMATION
  Report Type: Spontaneous
  Country: US (occurrence: None)
  Receive Date: 20151014
  Receipt Date: 20151014
  Transmission Date: 20160304
  Serious: Yes (Other)
  Sender: FDA-Public Use
  Company Number: None

PATIENT
  Age: 56 Year
  Sex: Female

DRUGS (8)
  1. BAYER LOW DOSE ASPIRIN ORANGE [Concomitant]
  2. CLINDAMYCIN PHOSPHATE LOTION TOPICAL SUSPENSION USP [Concomitant]
  3. FLUTICASONE PROPIONATE 0.05% CREAM MFG G+W LABS SOUTH PLAINFIELD, NJ 07080 [Suspect]
     Active Substance: FLUTICASONE PROPIONATE
     Indication: ROSACEA
     Route: 061
     Dates: start: 20150601, end: 20150605
  4. SYNTHROID [Concomitant]
     Active Substance: LEVOTHYROXINE SODIUM
  5. FLUTICASONE PROPIONATE 0.05% CREAM MFG G+W LABS SOUTH PLAINFIELD, NJ 07080 [Suspect]
     Active Substance: FLUTICASONE PROPIONATE
     Indication: ACNE
     Route: 061
     Dates: start: 20150601, end: 20150605
  6. FLUTICASONE PROPIONATE 0.05% CREAM MFG G+W LABS SOUTH PLAINFIELD, NJ 07080 [Suspect]
     Active Substance: FLUTICASONE PROPIONATE
     Indication: SEBORRHOEIC DERMATITIS
     Route: 061
     Dates: start: 20150601, end: 20150605
  7. FLUTICASONE PROPIONATE 0.05% CREAM MFG G+W LABS SOUTH PLAINFIELD, NJ 07080 [Suspect]
     Active Substance: FLUTICASONE PROPIONATE
     Indication: DERMATITIS CONTACT
     Route: 061
     Dates: start: 20150601, end: 20150605
  8. FLUTICASONE PROPIONATE 0.05% CREAM MFG G+W LABS SOUTH PLAINFIELD, NJ 07080 [Suspect]
     Active Substance: FLUTICASONE PROPIONATE
     Indication: SKIN DISORDER
     Route: 061
     Dates: start: 20150601, end: 20150605

REACTIONS (5)
  - Skin discolouration [None]
  - Skin burning sensation [None]
  - Skin erosion [None]
  - Rhinalgia [None]
  - Pain [None]

NARRATIVE: CASE EVENT DATE: 20150606
